FAERS Safety Report 10615300 (Version 8)
Quarter: 2015Q4

REPORT INFORMATION
  Report Type: Spontaneous
  Country: US (occurrence: US)
  Receive Date: 20141201
  Receipt Date: 20151027
  Transmission Date: 20160304
  Serious: No
  Sender: FDA-Public Use
  Company Number: US-PFIZER INC-2014323400

PATIENT
  Age: 54 Year
  Sex: Male
  Weight: 64 kg

DRUGS (10)
  1. ONDANSETRON [Concomitant]
     Active Substance: ONDANSETRON
     Dosage: UNK
  2. MORPHINE [Concomitant]
     Active Substance: MORPHINE
     Indication: PAIN
     Dosage: UNK
  3. ALDACTONE [Concomitant]
     Active Substance: SPIRONOLACTONE
     Dosage: UNK
  4. DILAUDID [Concomitant]
     Active Substance: HYDROMORPHONE HYDROCHLORIDE
     Dosage: UNK
  5. LASIX [Concomitant]
     Active Substance: FUROSEMIDE
     Dosage: UNK
     Dates: end: 20150301
  6. SUTENT [Suspect]
     Active Substance: SUNITINIB MALATE
     Indication: PANCREATIC NEUROENDOCRINE TUMOUR
     Dosage: 37.5 MG, DAILY CONTINUOUSLY
     Dates: start: 20141119, end: 20150403
  7. MIRALAX [Concomitant]
     Active Substance: POLYETHYLENE GLYCOL 3350
     Dosage: UNK
  8. PRAVASTATIN [Concomitant]
     Active Substance: PRAVASTATIN\PRAVASTATIN SODIUM
     Dosage: UNK
  9. PEPCID [Concomitant]
     Active Substance: FAMOTIDINE
     Dosage: UNK
  10. INSULIN [Concomitant]
     Active Substance: INSULIN NOS
     Dosage: UNK

REACTIONS (27)
  - Depression [Unknown]
  - Dry mouth [Unknown]
  - Dysgeusia [Unknown]
  - Vitamin D decreased [Unknown]
  - Dizziness [Unknown]
  - Dry skin [Unknown]
  - Pollakiuria [Unknown]
  - Faeces discoloured [Unknown]
  - Swelling face [Unknown]
  - Vomiting [Unknown]
  - Pain [Not Recovered/Not Resolved]
  - Fatigue [Unknown]
  - Jaundice [Recovering/Resolving]
  - Back pain [Unknown]
  - Oedema peripheral [Unknown]
  - Chest pain [Unknown]
  - Blood bilirubin abnormal [Unknown]
  - Abdominal discomfort [Unknown]
  - Dyspnoea [Unknown]
  - Chromaturia [Recovering/Resolving]
  - Dehydration [Unknown]
  - Constipation [Recovered/Resolved]
  - Nausea [Unknown]
  - Peripheral swelling [Unknown]
  - Liver function test abnormal [Recovering/Resolving]
  - Blood glucose increased [Unknown]
  - Weight decreased [Unknown]
